FAERS Safety Report 17239659 (Version 1)
Quarter: 2020Q1

REPORT INFORMATION
  Report Type: Spontaneous
  Country: ES (occurrence: ES)
  Receive Date: 20200106
  Receipt Date: 20200106
  Transmission Date: 20200409
  Serious: Yes (Life-Threatening, Hospitalization, Other)
  Sender: FDA-Public Use
  Company Number: ES-MALLINCKRODT-T201909180

PATIENT
  Age: 34 Year
  Sex: Female
  Weight: 60 kg

DRUGS (12)
  1. METAMIZOLE [Suspect]
     Active Substance: METAMIZOLE
     Indication: ANALGESIC THERAPY
  2. OXIDO NITROSO [Suspect]
     Active Substance: NITRIC OXIDE
     Indication: ANAESTHESIA
     Dosage: UNK
     Route: 055
     Dates: start: 20190215, end: 20190215
  3. PARACETAMOL ABAMED [Suspect]
     Active Substance: ACETAMINOPHEN
     Indication: ANALGESIC THERAPY
     Dosage: 1 GRAM, Q8H
     Route: 042
     Dates: start: 20190214, end: 20190216
  4. PARACETAMOL ABAMED [Suspect]
     Active Substance: ACETAMINOPHEN
     Dosage: UNK
     Route: 065
     Dates: start: 20190216
  5. MEROPENEM. [Suspect]
     Active Substance: MEROPENEM
     Indication: PRODUCT USED FOR UNKNOWN INDICATION
     Dosage: UNK
     Route: 042
     Dates: start: 20190224
  6. FILGRASTIM [Suspect]
     Active Substance: FILGRASTIM
     Indication: PRODUCT USED FOR UNKNOWN INDICATION
     Dosage: UNK
     Route: 065
     Dates: start: 20190224
  7. AMOXICILINA + ACIDO CLAVULANICO [Suspect]
     Active Substance: AMOXICILLIN\CLAVULANIC ACID
     Indication: PRODUCT USED FOR UNKNOWN INDICATION
     Dosage: 1 DOSAGE FORM
     Route: 065
     Dates: start: 20190214
  8. METAMIZOLE [Suspect]
     Active Substance: METAMIZOLE
     Indication: POSTOPERATIVE ANALGESIA
     Dosage: 8 GRAM
     Route: 042
     Dates: start: 20190214, end: 20190216
  9. LORAZEPAM. [Suspect]
     Active Substance: LORAZEPAM
     Indication: PRODUCT USED FOR UNKNOWN INDICATION
     Dosage: UNK
     Route: 065
     Dates: start: 20190214
  10. OFIRMEV [Suspect]
     Active Substance: ACETAMINOPHEN
     Indication: ANALGESIC THERAPY
     Dosage: 1 GRAM
     Route: 042
     Dates: start: 20190217
  11. OMEPRAZOL ABDRUG 20 MG CAPSULAS DURAS GASTRORRESISTENTES EFG , 14 C?PS [Suspect]
     Active Substance: OMEPRAZOLE SODIUM
     Indication: PROPHYLAXIS
     Dosage: UNK
     Route: 065
     Dates: start: 20190214
  12. RANITIDINE. [Suspect]
     Active Substance: RANITIDINE
     Indication: PROPHYLAXIS
     Dosage: 50 MILLIGRAM
     Route: 042
     Dates: start: 20190214

REACTIONS (3)
  - Anaemia [Unknown]
  - Neutropenia [Unknown]
  - Agranulocytosis [Unknown]

NARRATIVE: CASE EVENT DATE: 20190223
